FAERS Safety Report 14787026 (Version 2)
Quarter: 2018Q2

REPORT INFORMATION
  Report Type: Spontaneous
  Country: DE (occurrence: DE)
  Receive Date: 20180420
  Receipt Date: 20180508
  Transmission Date: 20180711
  Serious: Yes (Other)
  Sender: FDA-Public Use
  Company Number: DE-CONCORDIA PHARMACEUTICALS INC.-E2B_00011152

PATIENT
  Sex: Female

DRUGS (9)
  1. MAXIM (DIENOGEST\ETHINYL ESTRADIOL) [Interacting]
     Active Substance: DIENOGEST\ETHINYL ESTRADIOL
     Route: 048
     Dates: start: 2012
  2. RANITIDINE. [Interacting]
     Active Substance: RANITIDINE
     Indication: NONINFECTIVE ENCEPHALITIS
     Route: 065
     Dates: start: 201712
  3. METHOTREXATE. [Interacting]
     Active Substance: METHOTREXATE
     Indication: NONINFECTIVE ENCEPHALITIS
     Route: 065
     Dates: start: 201712
  4. PREDNISOLONE. [Suspect]
     Active Substance: PREDNISOLONE
     Indication: NONINFECTIVE ENCEPHALITIS
     Route: 065
     Dates: start: 201712
  5. LEVETIRACETAM. [Interacting]
     Active Substance: LEVETIRACETAM
     Indication: EPILEPSY
     Route: 048
     Dates: start: 201803
  6. MAGNESIUM [Interacting]
     Active Substance: MAGNESIUM
     Indication: NONINFECTIVE ENCEPHALITIS
     Route: 065
     Dates: start: 201712
  7. FOLIC ACID. [Interacting]
     Active Substance: FOLIC ACID
     Indication: NONINFECTIVE ENCEPHALITIS
     Route: 065
     Dates: start: 201712
  8. L-THYROXIN [Interacting]
     Active Substance: LEVOTHYROXINE SODIUM
     Indication: THYROID OPERATION
     Route: 065
     Dates: start: 1999
  9. DEKRISTOL [Interacting]
     Active Substance: CHOLECALCIFEROL
     Indication: NONINFECTIVE ENCEPHALITIS
     Route: 065
     Dates: start: 201712

REACTIONS (3)
  - Drug interaction [Unknown]
  - Noninfective encephalitis [Unknown]
  - Epilepsy [Unknown]

NARRATIVE: CASE EVENT DATE: 201712
